FAERS Safety Report 20515182 (Version 1)
Quarter: 2022Q1

REPORT INFORMATION
  Report Type: Spontaneous
  Country: US (occurrence: US)
  Receive Date: 20220224
  Receipt Date: 20220224
  Transmission Date: 20220424
  Serious: Yes (Hospitalization)
  Sender: FDA-Public Use
  Company Number: US-ELI_LILLY_AND_COMPANY-US202202008781

PATIENT
  Age: 71 Year
  Sex: Male
  Weight: 83.9 kg

DRUGS (11)
  1. BAMLANIVIMAB [Suspect]
     Active Substance: BAMLANIVIMAB
     Indication: COVID-19
     Dosage: 700 MG, SINGLE
     Route: 042
     Dates: start: 20210122, end: 20210122
  2. ARGININE HCL [ARGININE HYDROCHLORIDE] [Concomitant]
     Dosage: UNK, UNKNOWN
     Dates: start: 20170807
  3. ASPIRIN [Concomitant]
     Active Substance: ASPIRIN
     Dosage: UNK, UNKNOWN
     Dates: start: 20190226
  4. CHOLECALCIFEROL [Concomitant]
     Active Substance: CHOLECALCIFEROL
     Dosage: UNK, UNKNOWN
     Dates: start: 20180706
  5. MAGNESIUM [Concomitant]
     Active Substance: MAGNESIUM
     Dosage: UNK, UNKNOWN
     Dates: start: 20170807
  6. MELATONIN [MELATONIN;PYRIDOXINE HYDROCHLORIDE [Concomitant]
     Dosage: UNK, UNKNOWN
     Route: 060
     Dates: start: 20170807
  7. ROSUVASTATIN [Concomitant]
     Active Substance: ROSUVASTATIN
     Dosage: UNK, UNKNOWN
     Dates: start: 20200513
  8. TADALAFIL [Concomitant]
     Active Substance: TADALAFIL
     Dosage: UNK, UNKNOWN
     Dates: start: 20200508
  9. VITAMIN B COMPLEX [Concomitant]
     Active Substance: CYANOCOBALAMIN\DEXPANTHENOL\NIACINAMIDE\PYRIDOXINE HYDROCHLORIDE\RIBOFLAVIN 5^-PHOSPHATE SODIUM\THIA
     Dosage: UNK, UNKNOWN
     Dates: start: 20181115
  10. VITAMIN E [Concomitant]
     Active Substance: .ALPHA.-TOCOPHEROL
     Dosage: UNK, UNKNOWN
     Dates: start: 20200327
  11. ZINC ACETATE [Concomitant]
     Active Substance: ZINC ACETATE
     Dosage: UNK, UNKNOWN
     Dates: start: 20170807

REACTIONS (2)
  - Acute respiratory failure [Recovering/Resolving]
  - COVID-19 pneumonia [Recovering/Resolving]

NARRATIVE: CASE EVENT DATE: 20210125
